FAERS Safety Report 21898525 (Version 1)
Quarter: 2023Q1

REPORT INFORMATION
  Report Type: Spontaneous
  Country: US (occurrence: None)
  Receive Date: 20230123
  Receipt Date: 20230123
  Transmission Date: 20230417
  Serious: Yes (Death, Hospitalization)
  Sender: FDA-Public Use
  Company Number: 2023A017783

PATIENT
  Age: 51 Year
  Sex: Female

DRUGS (19)
  1. QUETIAPINE [Suspect]
     Active Substance: QUETIAPINE
     Route: 048
  2. ROSUVASTATIN [Suspect]
     Active Substance: ROSUVASTATIN
     Route: 048
  3. LINACLOTIDE [Suspect]
     Active Substance: LINACLOTIDE
     Route: 048
  4. NAPROXEN [Suspect]
     Active Substance: NAPROXEN
     Route: 048
  5. METFORMIN [Suspect]
     Active Substance: METFORMIN HYDROCHLORIDE
     Route: 048
  6. LITHIUM [Suspect]
     Active Substance: LITHIUM
     Route: 048
  7. ISOSORBIDE DINITRATE [Suspect]
     Active Substance: ISOSORBIDE DINITRATE
     Route: 048
  8. BLACK COHOSH [Suspect]
     Active Substance: BLACK COHOSH
     Route: 048
  9. CITALOPRAM HYDROBROMIDE [Suspect]
     Active Substance: CITALOPRAM HYDROBROMIDE
     Route: 048
  10. FAMOTIDINE [Suspect]
     Active Substance: FAMOTIDINE
     Route: 048
  11. FENOFIBRATE [Suspect]
     Active Substance: FENOFIBRATE
     Route: 048
  12. FUROSEMIDE [Suspect]
     Active Substance: FUROSEMIDE
     Route: 048
  13. MELATONIN [Suspect]
     Active Substance: MELATONIN
     Route: 048
  14. SINGULAIR [Suspect]
     Active Substance: MONTELUKAST SODIUM
     Route: 048
  15. VITAMIN E [Suspect]
     Active Substance: .ALPHA.-TOCOPHEROL
     Route: 048
  16. PRAZOSIN [Suspect]
     Active Substance: PRAZOSIN
     Route: 048
  17. ROPINIROLE [Suspect]
     Active Substance: ROPINIROLE
     Route: 048
  18. VITAMIN D [Suspect]
     Active Substance: VITAMIN D NOS
     Route: 048
  19. MIRTAZAPINE [Suspect]
     Active Substance: MIRTAZAPINE
     Route: 048

REACTIONS (2)
  - Completed suicide [Fatal]
  - Toxicity to various agents [Fatal]
